FAERS Safety Report 12293914 (Version 5)
Quarter: 2020Q3

REPORT INFORMATION
  Report Type: Report from Study
  Country: US (occurrence: US)
  Receive Date: 20160422
  Receipt Date: 20200417
  Transmission Date: 20201104
  Serious: Yes (Hospitalization)
  Sender: FDA-Public Use
  Company Number: US-ROCHE-1725254

PATIENT
  Age: 49 Year
  Sex: Male
  Weight: 75.5 kg

DRUGS (11)
  1. POLATUZUMAB VEDOTIN. [Suspect]
     Active Substance: POLATUZUMAB VEDOTIN
     Indication: B-CELL LYMPHOMA
     Dosage: 1.4 OR 1.8 MG/KG ON DAY 1 OF EACH 21?DAY CYCLE?THE MOST RECENT DOSE PRIOR TO THE EVENT ONSET: 09/MAR
     Route: 042
     Dates: start: 20160309
  2. XANAX [Concomitant]
     Active Substance: ALPRAZOLAM
     Indication: INSOMNIA
     Route: 065
     Dates: start: 20160309, end: 20160309
  3. VENETOCLAX. [Suspect]
     Active Substance: VENETOCLAX
     Indication: B-CELL LYMPHOMA
     Dosage: ON DAYS 1 TO 21 OF EACH 21?DAY CYCLE?THE MOST RECENT DOSE PRIOR TO THE EVENT ONSET: 10/MAR/2016 (400
     Route: 048
     Dates: start: 20160309
  4. XANAX [Concomitant]
     Active Substance: ALPRAZOLAM
     Route: 065
     Dates: start: 20160310, end: 20160310
  5. OBINUTUZUMAB. [Suspect]
     Active Substance: OBINUTUZUMAB
     Indication: B-CELL LYMPHOMA
     Dosage: ON DAYS 1, 8 AND 15 OF CYCLE 1 AND ON DAY 1 OF CYCLES 2 TO 6?THE MOST RECENT DOSE PRIOR TO THE EVENT
     Route: 042
     Dates: start: 20160309
  6. ALLOPURINOL. [Concomitant]
     Active Substance: ALLOPURINOL
     Route: 065
     Dates: start: 20160219, end: 20160322
  7. TRAMADOL. [Concomitant]
     Active Substance: TRAMADOL
     Indication: PAIN
     Route: 065
     Dates: start: 20160309, end: 20160309
  8. CLARITIN [Concomitant]
     Active Substance: LORATADINE
     Route: 065
     Dates: start: 20160219
  9. RASBURICASE [Concomitant]
     Active Substance: RASBURICASE
     Indication: PROPHYLAXIS
     Route: 065
     Dates: start: 20160309, end: 20160309
  10. MAGNESIUM SULFATE. [Concomitant]
     Active Substance: MAGNESIUM SULFATE
     Route: 065
     Dates: start: 20160310, end: 20160310
  11. ACETAMINOPHEN W/OXYCODONE [Concomitant]
     Active Substance: ACETAMINOPHEN\OXYCODONE HYDROCHLORIDE
     Indication: PAIN
     Route: 065
     Dates: start: 20160311, end: 20160311

REACTIONS (2)
  - Aspartate aminotransferase increased [Recovered/Resolved]
  - Alanine aminotransferase increased [Recovered/Resolved]

NARRATIVE: CASE EVENT DATE: 20160310
